FAERS Safety Report 10606534 (Version 1)
Quarter: 2014Q4

REPORT INFORMATION
  Report Type: Spontaneous
  Country: US (occurrence: None)
  Receive Date: 20141124
  Receipt Date: 20141124
  Transmission Date: 20150529
  Serious: Yes (Hospitalization)
  Sender: FDA-Public Use
  Company Number: None

PATIENT
  Age: 79 Year
  Sex: Female
  Weight: 63.7 kg

DRUGS (24)
  1. ZETIA [Concomitant]
     Active Substance: EZETIMIBE
  2. PRAVACHOL [Concomitant]
     Active Substance: PRAVASTATIN SODIUM
  3. REMERON [Suspect]
     Active Substance: MIRTAZAPINE
     Indication: DEPRESSION
     Dosage: CHRONIC/CHRONIC
     Route: 048
  4. TRAMADOL [Suspect]
     Active Substance: TRAMADOL
  5. SYNTHROID [Concomitant]
     Active Substance: LEVOTHYROXINE SODIUM
  6. ZOFRAN [Concomitant]
     Active Substance: ONDANSETRON HYDROCHLORIDE
  7. MIRALAX [Concomitant]
     Active Substance: POLYETHYLENE GLYCOL 3350
  8. REMERON [Suspect]
     Active Substance: MIRTAZAPINE
     Indication: PAIN
     Dosage: CHRONIC/CHRONIC
     Route: 048
  9. VITAMIN D2 [Concomitant]
     Active Substance: ERGOCALCIFEROL
  10. CYTOMEL [Concomitant]
     Active Substance: LIOTHYRONINE SODIUM
  11. ANTIVERT [Concomitant]
     Active Substance: MECLIZINE HYDROCHLORIDE
  12. FLUOXETINE [Suspect]
     Active Substance: FLUOXETINE\FLUOXETINE HYDROCHLORIDE
     Indication: ANXIETY
     Dosage: CHRONIC WITH RECNT DC/RECENT
     Route: 048
  13. ASA [Concomitant]
     Active Substance: ASPIRIN
  14. FLONASE [Concomitant]
     Active Substance: FLUTICASONE PROPIONATE
  15. FISH OIL [Concomitant]
     Active Substance: FISH OIL
  16. PROGESTIONE [Concomitant]
  17. CYMBALTA [Suspect]
     Active Substance: DULOXETINE HYDROCHLORIDE
  18. ALPRAZOLAM. [Suspect]
     Active Substance: ALPRAZOLAM
  19. NTG [Concomitant]
     Active Substance: NITROGLYCERIN
  20. PROTONIX [Concomitant]
     Active Substance: PANTOPRAZOLE SODIUM
  21. PREDNISONE. [Concomitant]
     Active Substance: PREDNISONE
  22. PERICOLACE [Concomitant]
  23. FLUOXETINE [Suspect]
     Active Substance: FLUOXETINE\FLUOXETINE HYDROCHLORIDE
     Indication: DEPRESSION
     Dosage: CHRONIC WITH RECNT DC/RECENT
     Route: 048
  24. RESTASIS [Concomitant]
     Active Substance: CYCLOSPORINE

REACTIONS (6)
  - Dry mouth [None]
  - Serotonin syndrome [None]
  - Blood pressure fluctuation [None]
  - Anxiety [None]
  - Tremor [None]
  - Muscle twitching [None]

NARRATIVE: CASE EVENT DATE: 20140819
